FAERS Safety Report 4680018-4 (Version None)
Quarter: 2005Q2

REPORT INFORMATION
  Report Type: 
  Country: None (occurrence: None)
  Receive Date: 20050602
  Receipt Date: 20041203
  Transmission Date: 20051028
  Serious: Yes (Other)
  Sender: FDA-Public Use
  Company Number: GB-GLAXOSMITHKLINE-B0359509A

PATIENT
  Sex: Male

DRUGS (2)
  1. PAROXETINE HCL [Suspect]
     Route: 065
  2. FLUOXETINE [Concomitant]

REACTIONS (18)
  - ABNORMAL BEHAVIOUR [None]
  - AGGRESSION [None]
  - AGITATION [None]
  - ANGER [None]
  - COMPLETED SUICIDE [None]
  - DELUSION [None]
  - DEPRESSION [None]
  - DISTURBANCE IN ATTENTION [None]
  - DYSKINESIA [None]
  - HOSTILITY [None]
  - ILL-DEFINED DISORDER [None]
  - MULTIPLE DRUG OVERDOSE [None]
  - OVERDOSE [None]
  - PAIN [None]
  - PARANOIA [None]
  - PSYCHOTIC DISORDER [None]
  - SLEEP DISORDER [None]
  - SUICIDAL IDEATION [None]
